FAERS Safety Report 19405813 (Version 1)
Quarter: 2021Q2

REPORT INFORMATION
  Report Type: Spontaneous
  Country: NL (occurrence: NL)
  Receive Date: 20210611
  Receipt Date: 20210611
  Transmission Date: 20210717
  Serious: Yes (Other)
  Sender: FDA-Public Use
  Company Number: NL-ASTELLAS-2021US016412

PATIENT
  Age: 71 Year
  Sex: Female

DRUGS (2)
  1. BETMIGA [Suspect]
     Active Substance: MIRABEGRON
     Indication: URGE INCONTINENCE
     Dosage: 50 MG, ONCE DAILY, IN THE EVENING
     Route: 048
     Dates: start: 201410, end: 202101
  2. BETMIGA [Suspect]
     Active Substance: MIRABEGRON
     Dosage: 25 MG, ONCE DAILY (SPLIT TABLETS)
     Route: 048
     Dates: start: 202101

REACTIONS (10)
  - Arthropathy [Unknown]
  - Middle insomnia [Not Recovered/Not Resolved]
  - Tendon laxity [Unknown]
  - Urinary retention [Recovering/Resolving]
  - Gait disturbance [Not Recovered/Not Resolved]
  - Dysuria [Recovering/Resolving]
  - Arthralgia [Not Recovered/Not Resolved]
  - Chondropathy [Unknown]
  - Wrong technique in product usage process [Unknown]
  - Anal pruritus [Not Recovered/Not Resolved]

NARRATIVE: CASE EVENT DATE: 2020
